FAERS Safety Report 20527356 (Version 1)
Quarter: 2022Q1

REPORT INFORMATION
  Report Type: Report from Study
  Country: DE (occurrence: None)
  Receive Date: 20220228
  Receipt Date: 20220228
  Transmission Date: 20220424
  Serious: Yes (Other)
  Sender: FDA-Public Use
  Company Number: DE-Merck Healthcare KGaA-9301978

PATIENT
  Sex: Female

DRUGS (4)
  1. TEPOTINIB [Suspect]
     Active Substance: TEPOTINIB
     Indication: Product used for unknown indication
     Dates: start: 20211209, end: 20211216
  2. TEPOTINIB [Suspect]
     Active Substance: TEPOTINIB
     Dates: start: 20211219, end: 20220105
  3. TEPOTINIB [Suspect]
     Active Substance: TEPOTINIB
     Dates: start: 20220114
  4. TEPOTINIB [Suspect]
     Active Substance: TEPOTINIB
     Dates: start: 20220119

REACTIONS (2)
  - Renal impairment [Unknown]
  - Oedema [Unknown]

NARRATIVE: CASE EVENT DATE: 20211201
